FAERS Safety Report 20450501 (Version 2)
Quarter: 2022Q1

REPORT INFORMATION
  Report Type: Spontaneous
  Country: BR (occurrence: BR)
  Receive Date: 20220209
  Receipt Date: 20220308
  Transmission Date: 20220423
  Serious: Yes (Other)
  Sender: FDA-Public Use
  Company Number: BR-BIOMARINAP-BR-2022-141372

PATIENT
  Age: 50 Year
  Sex: Female
  Weight: 48 kg

DRUGS (1)
  1. LARONIDASE [Suspect]
     Active Substance: LARONIDASE
     Indication: Mucopolysaccharidosis I
     Dosage: 20 DOSAGE FORM, QOW
     Route: 042
     Dates: start: 20091001

REACTIONS (12)
  - Glaucoma [Unknown]
  - Eye pain [Unknown]
  - Suspected COVID-19 [Unknown]
  - Throat irritation [Unknown]
  - Pain [Unknown]
  - Oropharyngeal pain [Unknown]
  - COVID-19 [Recovering/Resolving]
  - SARS-CoV-2 test positive [Recovering/Resolving]
  - Malaise [Recovering/Resolving]
  - Umbilical hernia [Recovering/Resolving]
  - Condition aggravated [Recovering/Resolving]
  - Therapy interrupted [Unknown]

NARRATIVE: CASE EVENT DATE: 20200101
